FAERS Safety Report 6858036-7 (Version None)
Quarter: 2010Q3

REPORT INFORMATION
  Report Type: 
  Country: None (occurrence: None)
  Receive Date: 20100719
  Receipt Date: 20100708
  Transmission Date: 20110219
  Serious: Yes (Congenital Anomaly)
  Sender: FDA-Public Use
  Company Number: US-GILEAD-2010-0030190

PATIENT
  Sex: Female
  Weight: 1.615 kg

DRUGS (3)
  1. TRUVADA [Suspect]
     Indication: HIV INFECTION
     Route: 064
     Dates: start: 20091104
  2. RETROVIR [Concomitant]
     Indication: HIV INFECTION
     Route: 064
     Dates: start: 20100421, end: 20100425
  3. KALETRA [Concomitant]
     Indication: HIV INFECTION
     Route: 064
     Dates: start: 20091104, end: 20100425

REACTIONS (1)
  - POLYDACTYLY [None]
